FAERS Safety Report 6769079-6 (Version None)
Quarter: 2010Q2

REPORT INFORMATION
  Report Type: 
  Country: None (occurrence: None)
  Receive Date: 20100601
  Receipt Date: 20100518
  Transmission Date: 20101027
  Serious: Yes (Life-Threatening, Hospitalization, Other)
  Sender: FDA-Public Use
  Company Number: THYM-1000913

PATIENT
  Age: 52 Year
  Sex: Male
  Weight: 69 kg

DRUGS (14)
  1. THYMOGLOBULIN [Suspect]
     Indication: BONE MARROW CONDITIONING REGIMEN
     Dosage: 175 MG, ONCE, INTRAVENOUS
     Route: 042
     Dates: start: 20081216, end: 20081216
  2. FLUDARABINE PHOSPHATE [Concomitant]
  3. .......................... [Concomitant]
  4. BUSULFAN (BUSULFAN) [Concomitant]
  5. ............................... [Concomitant]
  6. METHYLPREDNISOLONE [Concomitant]
  7. TACROLIMUS [Concomitant]
  8. METHOTREXATE [Concomitant]
  9. FILGRASTIM (FLGRASTIM) [Concomitant]
  10. VALPROATE SODIUM [Concomitant]
  11. SULFAMETHOPRIM (SULFAMETHOXAZOLE, TRIMETHOPRIM) [Concomitant]
  12. CIPRO [Concomitant]
  13. FLUCONAZOLE [Concomitant]
  14. ACYCLOVIR [Concomitant]

REACTIONS (9)
  - BONE MARROW TRANSPLANT [None]
  - CYSTITIS HAEMORRHAGIC [None]
  - CYTOMEGALOVIRUS INFECTION [None]
  - ENGRAFT FAILURE [None]
  - EPSTEIN-BARR VIRUS INFECTION [None]
  - FEBRILE NEUTROPENIA [None]
  - GENERAL PHYSICAL HEALTH DETERIORATION [None]
  - LEUKOPENIA [None]
  - PANCYTOPENIA [None]
